FAERS Safety Report 7177649-9 (Version None)
Quarter: 2010Q4

REPORT INFORMATION
  Report Type: 
  Country: None (occurrence: None)
  Receive Date: 20101220
  Receipt Date: 20101210
  Transmission Date: 20110411
  Serious: Yes (Hospitalization)
  Sender: FDA-Public Use
  Company Number: US-BIOGENIDEC-2010BI041185

PATIENT
  Sex: Male

DRUGS (26)
  1. AVONEX [Suspect]
     Indication: MULTIPLE SCLEROSIS
     Route: 030
     Dates: start: 19960504
  2. FEXOFENADINE HCL [Concomitant]
  3. LIDODERM [Concomitant]
     Route: 061
  4. EPIPEN [Concomitant]
  5. SIMVASTATIN [Concomitant]
  6. CYANOCOBALAMIN [Concomitant]
     Route: 030
  7. ACETAMINOPHEN AND HYDROCODONE BITARTRATE [Concomitant]
  8. ALPRAZOLAM [Concomitant]
  9. FLUTICASONE PROPIONATE [Concomitant]
     Route: 006
  10. CYCLOBENZRAPINE HCL [Concomitant]
  11. OXYBUTYNIN CHLORIDE [Concomitant]
  12. DOXAZOSIN MESYLATE [Concomitant]
  13. GABAPENTIN [Concomitant]
  14. LEXAPRO [Concomitant]
  15. PERCOCET [Concomitant]
  16. LORATADINE [Concomitant]
  17. ALEVE [Concomitant]
  18. EXCEDRIN (MIGRAINE) [Concomitant]
  19. MULTI-VITAMIN [Concomitant]
  20. LOVAZA [Concomitant]
  21. VITAMIN D [Concomitant]
  22. SUPER B COMPLEX [Concomitant]
  23. UNKNOWN MEDICATION [Concomitant]
  24. TYLENOL (CAPLET) [Concomitant]
  25. VALIUM [Concomitant]
  26. VITAMIN B-12 [Concomitant]

REACTIONS (3)
  - ARTHRITIS [None]
  - ARTHROPATHY [None]
  - INTERVERTEBRAL DISC DEGENERATION [None]
